FAERS Safety Report 4352672-8 (Version None)
Quarter: 2004Q2

REPORT INFORMATION
  Report Type: 
  Country: None (occurrence: None)
  Receive Date: 20040504
  Receipt Date: 20040227
  Transmission Date: 20050107
  Serious: Yes (Disabling)
  Sender: FDA-Public Use
  Company Number: US-BRISTOL-MYERS SQUIBB COMPANY-12518346

PATIENT
  Age: 81 Year
  Sex: Male
  Weight: 78 kg

DRUGS (16)
  1. CARBOPLATIN [Suspect]
     Indication: NON-SMALL CELL LUNG CANCER
     Dosage: AUC=5
     Route: 042
     Dates: start: 20031020, end: 20031020
  2. PACLITAXEL [Suspect]
     Indication: NON-SMALL CELL LUNG CANCER
     Dosage: 135 MG/M2
     Route: 042
     Dates: start: 20031020, end: 20031020
  3. METAMUCIL-2 [Concomitant]
  4. GLUCOTROL [Concomitant]
  5. PROCARDIA [Concomitant]
  6. ASPIRIN [Concomitant]
  7. MULTI-VITAMINS [Concomitant]
  8. HYTRIN [Concomitant]
  9. ADVAIR DISKUS 100/50 [Concomitant]
  10. PROTOPIC [Concomitant]
  11. ALBUTEROL [Concomitant]
  12. VENTOLIN [Concomitant]
  13. RANITIDINE [Concomitant]
  14. VICODIN [Concomitant]
  15. TRENTAL [Concomitant]
  16. MEGACE [Concomitant]

REACTIONS (2)
  - MYALGIA [None]
  - NEUROPATHY PERIPHERAL [None]
